FAERS Safety Report 23959086 (Version 2)
Quarter: 2024Q2

REPORT INFORMATION
  Report Type: Spontaneous
  Country: US (occurrence: US)
  Receive Date: 20240611
  Receipt Date: 20240626
  Transmission Date: 20240715
  Serious: Yes (Life-Threatening, Hospitalization)
  Sender: FDA-Public Use
  Company Number: US-TEVA-VS-3202923

PATIENT
  Age: 81 Year
  Sex: Male

DRUGS (2)
  1. LEVETIRACETAM [Suspect]
     Active Substance: LEVETIRACETAM
     Indication: Seizure prophylaxis
     Route: 065
  2. LACOSAMIDE [Suspect]
     Active Substance: LACOSAMIDE
     Indication: Seizure prophylaxis
     Dosage: RECEIVED INFUSION
     Route: 065

REACTIONS (4)
  - Bundle branch block left [Recovered/Resolved]
  - Atrial flutter [Recovered/Resolved]
  - Drug ineffective [Unknown]
  - Atrial fibrillation [Recovered/Resolved]
